FAERS Safety Report 18518617 (Version 1)
Quarter: 2020Q4

REPORT INFORMATION
  Report Type: Spontaneous
  Country: US (occurrence: US)
  Receive Date: 20201118
  Receipt Date: 20201118
  Transmission Date: 20210114
  Serious: No
  Sender: FDA-Public Use
  Company Number: US-BIOGEN-2020BI00850808

PATIENT
  Age: 54 Year
  Sex: Male

DRUGS (1)
  1. TYSABRI [Suspect]
     Active Substance: NATALIZUMAB
     Indication: MULTIPLE SCLEROSIS
     Route: 042
     Dates: start: 20191010

REACTIONS (9)
  - Vomiting [Unknown]
  - Product dose omission issue [Unknown]
  - Cardiac disorder [Unknown]
  - Diarrhoea [Unknown]
  - Malaise [Unknown]
  - Multiple sclerosis [Not Recovered/Not Resolved]
  - Hypertension [Unknown]
  - Visual impairment [Unknown]
  - Memory impairment [Unknown]

NARRATIVE: CASE EVENT DATE: 20200120
